FAERS Safety Report 6826487-2 (Version None)
Quarter: 2010Q3

REPORT INFORMATION
  Report Type: 
  Country: None (occurrence: None)
  Receive Date: 20100709
  Receipt Date: 20100707
  Transmission Date: 20110219
  Serious: Yes (Death)
  Sender: FDA-Public Use
  Company Number: GB-NAPPMUNDI-GBR-2010-0006767

PATIENT
  Sex: Female

DRUGS (2)
  1. BTDS 10 MG [Suspect]
     Indication: PAIN
     Dosage: 10 MCG, Q1H
     Route: 062
     Dates: start: 20100415
  2. DIHYDROCODEINE BITARTRATE INJ [Concomitant]

REACTIONS (1)
  - SUDDEN DEATH [None]
